FAERS Safety Report 6755425-6 (Version None)
Quarter: 2010Q2

REPORT INFORMATION
  Report Type: 
  Country: None (occurrence: None)
  Receive Date: 20100604
  Receipt Date: 20100525
  Transmission Date: 20101027
  Serious: Yes (Hospitalization)
  Sender: FDA-Public Use
  Company Number: US-JNJFOC-20100509769

PATIENT
  Sex: Male

DRUGS (1)
  1. SIMPONI [Suspect]
     Indication: DRUG USE FOR UNKNOWN INDICATION
     Route: 058

REACTIONS (1)
  - THROMBOCYTOPENIA [None]
